FAERS Safety Report 5223772-5 (Version None)
Quarter: 2007Q1

REPORT INFORMATION
  Report Type: 
  Country: None (occurrence: None)
  Receive Date: 20070130
  Receipt Date: 20070124
  Transmission Date: 20070707
  Serious: Yes (Death, Other)
  Sender: FDA-Public Use
  Company Number: JP-AVENTIS-200710199JP

PATIENT
  Age: 82 Year

DRUGS (1)
  1. TAXOTERE [Suspect]
     Indication: NON-SMALL CELL LUNG CANCER
     Route: 041

REACTIONS (3)
  - ILEUS [None]
  - SEPSIS [None]
  - WHITE BLOOD CELL COUNT DECREASED [None]
